FAERS Safety Report 23028329 (Version 1)
Quarter: 2023Q4

REPORT INFORMATION
  Report Type: Spontaneous
  Country: US (occurrence: None)
  Receive Date: 20231004
  Receipt Date: 20231004
  Transmission Date: 20240110
  Serious: Yes (Hospitalization, Other)
  Sender: FDA-Public Use
  Company Number: None

PATIENT
  Age: 71 Year
  Sex: 0

DRUGS (5)
  1. HYDRALAZINE [Suspect]
     Active Substance: HYDRALAZINE HYDROCHLORIDE
     Dates: start: 20210310, end: 20230831
  2. TRAZODONE HYDROCHLORIDE [Suspect]
     Active Substance: TRAZODONE HYDROCHLORIDE
     Dates: start: 20220404
  3. TAMSULOSIN [Suspect]
     Active Substance: TAMSULOSIN
     Dates: start: 20201221, end: 20230831
  4. SPIRONOLACTONE [Suspect]
     Active Substance: SPIRONOLACTONE
     Dates: end: 20230831
  5. MODAFINIL [Suspect]
     Active Substance: MODAFINIL
     Dates: start: 20190111, end: 20230831

REACTIONS (5)
  - Dizziness [None]
  - Rib fracture [None]
  - Joint injury [None]
  - Wrist fracture [None]
  - Fall [None]

NARRATIVE: CASE EVENT DATE: 20230831
